FAERS Safety Report 5134202-6 (Version None)
Quarter: 2006Q4

REPORT INFORMATION
  Report Type: 
  Country: None (occurrence: None)
  Receive Date: 20061024
  Receipt Date: 20061013
  Transmission Date: 20070319
  Serious: Yes (Other)
  Sender: FDA-Public Use
  Company Number: GB-MERCK-0610GBR00111

PATIENT
  Age: 57 Year
  Sex: Male
  Weight: 84 kg

DRUGS (4)
  1. ZOCOR [Suspect]
     Indication: HYPERCHOLESTEROLAEMIA
     Route: 048
     Dates: start: 20060404, end: 20060706
  2. AMLODIPINE BESYLATE [Concomitant]
     Route: 048
  3. ATENOLOL [Concomitant]
     Route: 048
  4. HYDROCHLOROTHIAZIDE AND LISINOPRIL [Concomitant]
     Route: 048

REACTIONS (1)
  - BLOOD CREATINE INCREASED [None]
